FAERS Safety Report 19292920 (Version 1)
Quarter: 2021Q2

REPORT INFORMATION
  Report Type: Spontaneous
  Country: KR (occurrence: KR)
  Receive Date: 20210524
  Receipt Date: 20210524
  Transmission Date: 20210717
  Serious: Yes (Other)
  Sender: FDA-Public Use
  Company Number: KR-SA-2021SA164849

PATIENT
  Age: 55 Year
  Sex: Female

DRUGS (2)
  1. DOCETAXEL. [Suspect]
     Active Substance: DOCETAXEL
     Indication: ORAL CAVITY CANCER METASTATIC
     Dosage: UNK UNK, QCY
  2. CISPLATIN. [Suspect]
     Active Substance: CISPLATIN
     Indication: ORAL CAVITY CANCER METASTATIC
     Dosage: UNK UNK, QCY

REACTIONS (10)
  - Proteinuria [Recovered/Resolved]
  - Renal impairment [Recovered/Resolved]
  - Focal segmental glomerulosclerosis [Recovered/Resolved]
  - Kidney fibrosis [Recovered/Resolved]
  - Atrophy [Recovered/Resolved]
  - Generalised oedema [Recovered/Resolved]
  - Oedema peripheral [Recovered/Resolved]
  - Rhonchi [Recovered/Resolved]
  - Haematuria [Recovered/Resolved]
  - Hyperplasia [Recovered/Resolved]
